FAERS Safety Report 10308576 (Version 1)
Quarter: 2014Q3

REPORT INFORMATION
  Report Type: Spontaneous
  Country: US (occurrence: US)
  Receive Date: 20140716
  Receipt Date: 20140716
  Transmission Date: 20150326
  Serious: Yes (Death)
  Sender: FDA-Public Use
  Company Number: US-GLAXOSMITHKLINE-A1081177A

PATIENT
  Age: 67 Year
  Sex: Male

DRUGS (1)
  1. PROMACTA [Suspect]
     Active Substance: ELTROMBOPAG OLAMINE
     Indication: ILL-DEFINED DISORDER
     Dosage: 50MG PER DAY
     Route: 048
     Dates: start: 20140612

REACTIONS (1)
  - Death [Fatal]

NARRATIVE: CASE EVENT DATE: 20140624
